FAERS Safety Report 10263361 (Version 1)
Quarter: 2014Q2

REPORT INFORMATION
  Report Type: Report from Study
  Country: BR (occurrence: BR)
  Receive Date: 20140626
  Receipt Date: 20140626
  Transmission Date: 20141212
  Serious: Yes (Other)
  Sender: FDA-Public Use
  Company Number: PHHY2014BR075639

PATIENT
  Age: 89 Year
  Sex: Female

DRUGS (3)
  1. GALVUS [Suspect]
     Indication: DIABETES MELLITUS
     Dosage: 2 DF (50 MG), DAILY
  2. METFORMIN [Suspect]
     Indication: DIABETES MELLITUS
     Dosage: 1 TABLET (850 MG), DAILY
  3. GLUCOVANCE [Suspect]
     Indication: DIABETES MELLITUS
     Dosage: 2 DF, DAILY

REACTIONS (3)
  - Cataract [Recovered/Resolved]
  - Cholelithiasis [Recovered/Resolved]
  - Pain [Recovered/Resolved]
